FAERS Safety Report 23700917 (Version 1)
Quarter: 2024Q2

REPORT INFORMATION
  Report Type: Spontaneous
  Country: US (occurrence: US)
  Receive Date: 20240403
  Receipt Date: 20240403
  Transmission Date: 20240716
  Serious: No
  Sender: FDA-Public Use
  Company Number: US-AJANTA-2023AJA00156

PATIENT

DRUGS (1)
  1. CHOLESTYRAMINE [Suspect]
     Active Substance: CHOLESTYRAMINE
     Indication: Product used for unknown indication

REACTIONS (6)
  - Oral discomfort [Unknown]
  - Product substitution issue [Unknown]
  - Oropharyngeal discomfort [Unknown]
  - Product use complaint [Unknown]
  - Drug ineffective [Unknown]
  - Product solubility abnormal [Unknown]
